FAERS Safety Report 9624659 (Version 1)
Quarter: 2013Q4

REPORT INFORMATION
  Report Type: Spontaneous
  Country: GB (occurrence: None)
  Receive Date: 20131010
  Receipt Date: 20131010
  Transmission Date: 20140711
  Serious: Yes (Hospitalization, Other)
  Sender: FDA-Public Use
  Company Number: 1933769

PATIENT
  Age: 34 Year
  Sex: Male
  Weight: 63 kg

DRUGS (4)
  1. VINCRISTINE SULFATE [Suspect]
     Indication: EWING^S SARCOMA
     Route: 042
     Dates: start: 20130318, end: 20130320
  2. MIFAMURTIDE [Suspect]
     Indication: EWING^S SARCOMA
     Dates: start: 20130213
  3. DACTINOMYCIN [Suspect]
     Indication: EWING^S SARCOMA
     Route: 042
     Dates: start: 20130318, end: 20130320
  4. IFOSFAMIDE [Suspect]
     Indication: EWING^S SARCOMA
     Route: 042
     Dates: start: 20130318, end: 20130320

REACTIONS (7)
  - Chills [None]
  - Chills [None]
  - Presyncope [None]
  - Nausea [None]
  - Dizziness [None]
  - Syncope [None]
  - Off label use [None]
